FAERS Safety Report 21193919 (Version 1)
Quarter: 2022Q3

REPORT INFORMATION
  Report Type: Report from Study
  Country: US (occurrence: None)
  Receive Date: 20220810
  Receipt Date: 20220810
  Transmission Date: 20221027
  Serious: Yes (Hospitalization)
  Sender: FDA-Public Use
  Company Number: US-ROCHE-3152419

PATIENT
  Age: 45 Year
  Sex: Male
  Weight: 71.5 kg

DRUGS (9)
  1. VENETOCLAX [Suspect]
     Active Substance: VENETOCLAX
     Indication: B-cell lymphoma recurrent
     Dosage: 2-14 DAYS
     Route: 048
     Dates: start: 20220329, end: 20220728
  2. OBINUTUZUMAB [Suspect]
     Active Substance: OBINUTUZUMAB
     Indication: B-cell lymphoma recurrent
     Route: 042
     Dates: start: 20220328, end: 20220716
  3. IBRUTINIB [Suspect]
     Active Substance: IBRUTINIB
     Indication: B-cell lymphoma recurrent
     Dosage: D 1-14
     Route: 048
     Dates: start: 20220328, end: 20220728
  4. PREDNISONE [Suspect]
     Active Substance: PREDNISONE
     Indication: B-cell lymphoma recurrent
     Dosage: D 1-7
     Route: 048
     Dates: start: 20220328, end: 20220721
  5. LENALIDOMIDE [Suspect]
     Active Substance: LENALIDOMIDE
     Indication: B-cell lymphoma recurrent
     Dosage: D 1-14
     Route: 042
     Dates: start: 20220328, end: 20220728
  6. POLATUZUMAB VEDOTIN [Suspect]
     Active Substance: POLATUZUMAB VEDOTIN
     Indication: B-cell lymphoma recurrent
     Route: 042
     Dates: start: 20220329, end: 20220716
  7. NEULASTA [Concomitant]
     Active Substance: PEGFILGRASTIM
     Dosage: D8
     Route: 058
     Dates: start: 20220404
  8. BACTRIM DS [Concomitant]
     Active Substance: SULFAMETHOXAZOLE\TRIMETHOPRIM
     Dosage: 800MG/160
     Route: 048
     Dates: start: 20220328
  9. ACYCLOVIR [Concomitant]
     Active Substance: ACYCLOVIR
     Route: 048
     Dates: start: 20220328

REACTIONS (2)
  - Pneumonia [Unknown]
  - COVID-19 [Unknown]

NARRATIVE: CASE EVENT DATE: 20220730
